FAERS Safety Report 4439546-9 (Version None)
Quarter: 2004Q3

REPORT INFORMATION
  Report Type: 
  Country: None (occurrence: None)
  Receive Date: 20040901
  Receipt Date: 20040901
  Transmission Date: 20050211
  Serious: Yes (Hospitalization)
  Sender: FDA-Public Use
  Company Number: None

PATIENT
  Sex: Male
  Weight: 98.8842 kg

DRUGS (5)
  1. ASPIRIN [Suspect]
     Indication: PAIN
     Dosage: 2-4 TABS PO QHS (STARTED 2 WEEKS PRIOR TO THE ADMISSION)
     Route: 048
  2. PRAVACHOL [Concomitant]
  3. ZIAC [Concomitant]
  4. SYNTHROID [Concomitant]
  5. AVALIDE [Concomitant]

REACTIONS (6)
  - ANAEMIA [None]
  - ASTHENIA [None]
  - DIZZINESS [None]
  - DYSPNOEA [None]
  - FAECES DISCOLOURED [None]
  - MELAENA [None]
